FAERS Safety Report 5456920-2 (Version None)
Quarter: 2007Q3

REPORT INFORMATION
  Report Type: 
  Country: None (occurrence: None)
  Receive Date: 20070917
  Receipt Date: 20070917
  Transmission Date: 20080115
  Serious: Yes (Other)
  Sender: FDA-Public Use
  Company Number: None

PATIENT
  Sex: Female
  Weight: 58.0604 kg

DRUGS (1)
  1. ACETAMINOPHEN [Suspect]
     Indication: ARTHRITIS
     Dosage: 500MG 1-2 DAILY ORAL
     Route: 048
     Dates: start: 20060901, end: 20061001

REACTIONS (1)
  - HEADACHE [None]
